FAERS Safety Report 7416098-2 (Version None)
Quarter: 2011Q2

REPORT INFORMATION
  Report Type: 
  Country: None (occurrence: None)
  Receive Date: 20110414
  Receipt Date: 20110401
  Transmission Date: 20111010
  Serious: Yes (Other)
  Sender: FDA-Public Use
  Company Number: CA-ELI_LILLY_AND_COMPANY-CA201104001435

PATIENT
  Sex: Female

DRUGS (1)
  1. CYMBALTA [Suspect]
     Indication: GENERALISED ANXIETY DISORDER
     Dosage: 30 MG, UNKNOWN
     Dates: start: 20110301

REACTIONS (4)
  - NOCTURIA [None]
  - POLYURIA [None]
  - RENAL FAILURE [None]
  - BLOOD CREATININE INCREASED [None]
